FAERS Safety Report 10561505 (Version 3)
Quarter: 2015Q4

REPORT INFORMATION
  Report Type: Spontaneous
  Country: US (occurrence: US)
  Receive Date: 20141103
  Receipt Date: 20151027
  Transmission Date: 20160304
  Serious: No
  Sender: FDA-Public Use
  Company Number: US-ENDO PHARMACEUTICALS INC.-APIR20140008

PATIENT
  Sex: Female

DRUGS (3)
  1. ALPRAZOLAM IR TABLETS 0.25MG [Suspect]
     Active Substance: ALPRAZOLAM
     Route: 048
     Dates: start: 2014
  2. ALPRAZOLAM IR TABLETS 0.25MG [Suspect]
     Active Substance: ALPRAZOLAM
     Indication: PANIC ATTACK
     Route: 048
     Dates: start: 1994, end: 1994
  3. ALPRAZOLAM IR TABLETS 0.25MG [Suspect]
     Active Substance: ALPRAZOLAM
     Indication: ANXIETY
     Route: 048
     Dates: start: 201403, end: 2014

REACTIONS (4)
  - Nausea [Recovered/Resolved]
  - Delusional disorder, unspecified type [Not Recovered/Not Resolved]
  - Somnolence [Recovered/Resolved]
  - Drug ineffective [Not Recovered/Not Resolved]

NARRATIVE: CASE EVENT DATE: 1994
